FAERS Safety Report 22002926 (Version 2)
Quarter: 2023Q1

REPORT INFORMATION
  Report Type: Spontaneous
  Country: CN (occurrence: CN)
  Receive Date: 20230217
  Receipt Date: 20230321
  Transmission Date: 20230417
  Serious: Yes (Death, Other)
  Sender: FDA-Public Use
  Company Number: CN-AMGEN-CHNSP2023025052

PATIENT
  Age: 4 Month
  Sex: Female

DRUGS (8)
  1. BLINCYTO [Suspect]
     Active Substance: BLINATUMOMAB
     Indication: Acute lymphocytic leukaemia
     Dosage: 1.5 MICROGRAM/M^2 (DAY 2)
     Route: 065
  2. BLINCYTO [Suspect]
     Active Substance: BLINATUMOMAB
     Dosage: 10 MICROGRAM/M^2 (DAY 3)
     Route: 065
  3. BLINCYTO [Suspect]
     Active Substance: BLINATUMOMAB
     Dosage: 15 MICROGRAMM^2 (DAY 14)
     Route: 065
  4. FLUDARABINE [Concomitant]
     Active Substance: FLUDARABINE PHOSPHATE
     Indication: Chemotherapy
     Dosage: 25 MILLIGRAM/M^2 QD FOR 3 DAYS (-4 TO -2 DAYS OR -5 TO -3 DAYS)
     Route: 065
  5. CYCLOPHOSPHAMIDE [Concomitant]
     Active Substance: CYCLOPHOSPHAMIDE
     Indication: Chemotherapy
     Dosage: 20 MILLIGRAM/KG QD (FOR 3 DAYS (-4 TO -2 DAYS OR -5 TO -3 DAYS)
     Route: 065
  6. ETOPOSIDE [Concomitant]
     Active Substance: ETOPOSIDE
     Indication: Allogenic stem cell transplantation
     Dosage: UNK
     Route: 065
  7. BUSULFAN [Concomitant]
     Active Substance: BUSULFAN
     Indication: Allogenic stem cell transplantation
     Dosage: UNK
     Route: 065
  8. LAPINE T-LYMPHOCYTE IMMUNE GLOBULIN [Concomitant]
     Active Substance: LAPINE T-LYMPHOCYTE IMMUNE GLOBULIN
     Indication: Allogenic stem cell transplantation
     Dosage: UNK
     Route: 065

REACTIONS (14)
  - Graft versus host disease in gastrointestinal tract [Unknown]
  - Graft versus host disease in skin [Unknown]
  - Cystitis haemorrhagic [Unknown]
  - Acute respiratory distress syndrome [Unknown]
  - Gastrointestinal haemorrhage [Unknown]
  - Cytomegalovirus infection [Unknown]
  - Pneumonia [Unknown]
  - Transplantation complication [Fatal]
  - Thrombotic microangiopathy [Fatal]
  - Mucosal inflammation [Unknown]
  - Off label use [Unknown]
  - Adenovirus infection [Unknown]
  - Human herpesvirus 6 infection [Unknown]
  - Epstein-Barr virus infection [Unknown]
